FAERS Safety Report 11013620 (Version 2)
Quarter: 2015Q2

REPORT INFORMATION
  Report Type: Spontaneous
  Country: US (occurrence: US)
  Receive Date: 20150411
  Receipt Date: 20150525
  Transmission Date: 20150821
  Serious: No
  Sender: FDA-Public Use
  Company Number: US-JNJFOC-20091008065

PATIENT
  Age: 29 Year
  Sex: Male
  Weight: 82.56 kg

DRUGS (1)
  1. REMICADE [Suspect]
     Active Substance: INFLIXIMAB
     Indication: CROHN^S DISEASE
     Dosage: 5 MG/KG
     Route: 042
     Dates: start: 200704

REACTIONS (4)
  - Infusion related reaction [Recovered/Resolved]
  - Peripheral swelling [Recovered/Resolved]
  - Infusion site extravasation [Unknown]
  - Tenderness [Recovered/Resolved]

NARRATIVE: CASE EVENT DATE: 200910
